FAERS Safety Report 9387771 (Version 1)
Quarter: 2013Q3

REPORT INFORMATION
  Report Type: Spontaneous
  Country: CN (occurrence: CN)
  Receive Date: 20130708
  Receipt Date: 20130708
  Transmission Date: 20140515
  Serious: Yes (Death)
  Sender: FDA-Public Use
  Company Number: CN-NAPPMUNDI-GBR-2013-0013921

PATIENT
  Age: 56 Year
  Sex: Female

DRUGS (11)
  1. OXYCODONE HCL PR TABLET [Suspect]
     Indication: PAIN
     Dosage: 150 MG, Q8H
     Route: 048
     Dates: start: 20130425, end: 20130503
  2. OXYCODONE HCL PR TABLET [Suspect]
     Dosage: 120 MG, Q12H
     Route: 048
     Dates: start: 20130423, end: 20130425
  3. OXYCODONE HCL PR TABLET [Suspect]
     Dosage: 90 MG, Q12H
     Route: 048
     Dates: start: 20130420, end: 20130423
  4. MORPHINE SULFATE CR TABLET [Suspect]
     Indication: PAIN
     Dosage: 300 MG, Q12H
     Route: 048
     Dates: start: 20130503, end: 20130503
  5. MORPHINE SULFATE CR TABLET [Suspect]
     Dosage: 150 MG, Q12H
     Route: 048
     Dates: start: 20130411, end: 20130420
  6. MORPHINE SULFATE CR TABLET [Suspect]
     Dosage: 100 MG, Q12H
     Route: 048
     Dates: start: 20130320, end: 20130411
  7. MORPHINE SULFATE CR TABLET [Suspect]
     Dosage: 80 MG, Q12H
     Route: 048
     Dates: start: 20130319, end: 20130319
  8. CELECOXIB [Concomitant]
     Dosage: 1 DF, Q24H
     Route: 048
  9. CARBAMAZEPINE A [Concomitant]
     Dosage: 1 DF, Q8H
     Route: 048
  10. MORPHINE HYDROCHLORIDE [Concomitant]
     Dosage: UNK
     Route: 042
  11. FENTANYL [Concomitant]
     Dosage: 4-5 PATCHES
     Route: 062

REACTIONS (6)
  - Malignant neoplasm progression [Fatal]
  - Vomiting [Unknown]
  - Nausea [Unknown]
  - Drug ineffective [Unknown]
  - Off label use [Unknown]
  - Pain [Unknown]
